FAERS Safety Report 8462626-8 (Version None)
Quarter: 2012Q2

REPORT INFORMATION
  Report Type: 
  Country: None (occurrence: None)
  Receive Date: 20120625
  Receipt Date: 20120621
  Transmission Date: 20120825
  Serious: Yes (Other)
  Sender: FDA-Public Use
  Company Number: GB-ROCHE-776945

PATIENT
  Sex: Female
  Weight: 72 kg

DRUGS (2)
  1. MABTHERA [Suspect]
     Indication: RHEUMATOID ARTHRITIS
     Route: 065
  2. AZATHIOPRINE [Concomitant]

REACTIONS (1)
  - BASAL CELL CARCINOMA [None]
